FAERS Safety Report 7579885-6 (Version None)
Quarter: 2011Q2

REPORT INFORMATION
  Report Type: 
  Country: None (occurrence: None)
  Receive Date: 20110629
  Receipt Date: 20110616
  Transmission Date: 20111010
  Serious: Yes (Hospitalization, Other)
  Sender: FDA-Public Use
  Company Number: US-ELI_LILLY_AND_COMPANY-US201103004851

PATIENT
  Sex: Female

DRUGS (16)
  1. TRAMADOL HCL [Concomitant]
  2. MULTI-VITAMINS [Concomitant]
  3. COUMADIN [Concomitant]
  4. VITAMIN D [Concomitant]
  5. LISINOPRIL [Concomitant]
  6. SYNTHROID [Concomitant]
  7. FISH OIL [Concomitant]
  8. MAGNESIUM [Concomitant]
  9. MUCINEX [Concomitant]
  10. WARFARIN SODIUM [Concomitant]
  11. LIPITOR [Concomitant]
  12. FORTEO [Suspect]
     Indication: OSTEOPOROSIS
     Dosage: 20 UG, DAILY (1/D)
     Route: 065
     Dates: start: 20101001, end: 20110301
  13. SINGULAIR [Concomitant]
  14. CALCIUM CARBONATE [Concomitant]
  15. ALLEGRA [Concomitant]
  16. PRILOSEC [Concomitant]

REACTIONS (5)
  - GASTRIC DISORDER [None]
  - GASTROINTESTINAL OBSTRUCTION [None]
  - ILEUS [None]
  - PNEUMONIA [None]
  - DRUG DOSE OMISSION [None]
